FAERS Safety Report 4474138-7 (Version None)
Quarter: 2004Q4

REPORT INFORMATION
  Report Type: 
  Country: None (occurrence: None)
  Receive Date: 20041014
  Receipt Date: 20041005
  Transmission Date: 20050328
  Serious: Yes (Hospitalization)
  Sender: FDA-Public Use
  Company Number: 200413713FR

PATIENT
  Age: 92 Year
  Sex: Female

DRUGS (7)
  1. FLAGYL [Suspect]
     Route: 042
     Dates: start: 20040822, end: 20040902
  2. FLAGYL [Suspect]
     Route: 048
     Dates: start: 20040829, end: 20040902
  3. CIFLOX [Suspect]
     Route: 042
     Dates: start: 20040821, end: 20040902
  4. ROCEPHIN [Suspect]
     Route: 042
     Dates: start: 20040821, end: 20040902
  5. AMLOR [Concomitant]
  6. CIPRALAN [Concomitant]
  7. KARDEGIC [Concomitant]

REACTIONS (1)
  - CLOSTRIDIUM COLITIS [None]
